FAERS Safety Report 7773963-4 (Version None)
Quarter: 2011Q3

REPORT INFORMATION
  Report Type: 
  Country: None (occurrence: None)
  Receive Date: 20110923
  Receipt Date: 20110912
  Transmission Date: 20111222
  Serious: Yes (Hospitalization)
  Sender: FDA-Public Use
  Company Number: US-JNJFOC-20110905328

PATIENT
  Sex: Male
  Weight: 74.84 kg

DRUGS (2)
  1. CYCLOBENZAPRINE HCL [Suspect]
     Indication: FIBROMYALGIA
     Route: 048
     Dates: start: 20090101, end: 20090101
  2. FLEXERIL [Suspect]
     Indication: FIBROMYALGIA
     Route: 048
     Dates: start: 20090101

REACTIONS (4)
  - MYOCARDIAL INFARCTION [None]
  - DEHYDRATION [None]
  - HYPERSENSITIVITY [None]
  - MALAISE [None]
